FAERS Safety Report 5353882-3 (Version None)
Quarter: 2007Q2

REPORT INFORMATION
  Report Type: 
  Country: None (occurrence: None)
  Receive Date: 20070521
  Receipt Date: 20070202
  Transmission Date: 20071010
  Serious: No
  Sender: FDA-Public Use
  Company Number: WAES 0702USA00563

PATIENT
  Age: 53 Year
  Sex: Male
  Weight: 131.9967 kg

DRUGS (13)
  1. JANUVIA [Suspect]
     Indication: BLOOD GLUCOSE FLUCTUATION
     Dosage: 100 MG, DAILY, PO
     Route: 048
     Dates: start: 20070108
  2. AVANDIA [Concomitant]
  3. COMBIVENT [Concomitant]
  4. DIOVAN [Concomitant]
  5. FLEXERIL [Concomitant]
  6. FOLTX [Concomitant]
  7. K-DUR 10 [Concomitant]
  8. LASIX [Concomitant]
  9. LORTAB [Concomitant]
  10. WELLBUTRIN [Concomitant]
  11. ZAROXOLYN [Concomitant]
  12. CYANOCOBALAMIN [Concomitant]
  13. IRON [Concomitant]

REACTIONS (1)
  - BLOOD GLUCOSE INCREASED [None]
